FAERS Safety Report 7092489-7 (Version None)
Quarter: 2010Q4

REPORT INFORMATION
  Report Type: 
  Country: None (occurrence: None)
  Receive Date: 20101108
  Receipt Date: 20101108
  Transmission Date: 20110411
  Serious: Yes (Hospitalization)
  Sender: FDA-Public Use
  Company Number: None

PATIENT
  Age: 66 Year
  Sex: Male
  Weight: 103.92 kg

DRUGS (1)
  1. DRONEDARONE [Suspect]
     Indication: ATRIAL FIBRILLATION
     Dosage: 400 MG EVERY DAY PO
     Route: 048
     Dates: start: 20101016, end: 20101022

REACTIONS (6)
  - ABDOMINAL DISTENSION [None]
  - DRUG EFFECT DECREASED [None]
  - FLUID RETENTION [None]
  - NOCTURNAL DYSPNOEA [None]
  - OEDEMA PERIPHERAL [None]
  - ORTHOPNOEA [None]
